FAERS Safety Report 5629628-8 (Version None)
Quarter: 2008Q1

REPORT INFORMATION
  Report Type: 
  Country: None (occurrence: None)
  Receive Date: 20080214
  Receipt Date: 20080205
  Transmission Date: 20080703
  Serious: Yes (Hospitalization)
  Sender: FDA-Public Use
  Company Number: 2007BI026172

PATIENT
  Age: 47 Year
  Sex: Female
  Weight: 94.3482 kg

DRUGS (1)
  1. AVONEX [Suspect]
     Indication: MULTIPLE SCLEROSIS
     Dosage: 30 UG;QW;IM
     Route: 030
     Dates: start: 20060828

REACTIONS (2)
  - CROHN'S DISEASE [None]
  - PAIN IN EXTREMITY [None]
